FAERS Safety Report 7141934-7 (Version None)
Quarter: 2010Q4

REPORT INFORMATION
  Report Type: 
  Country: None (occurrence: None)
  Receive Date: 20101117
  Receipt Date: 20100818
  Transmission Date: 20110411
  Serious: No
  Sender: FDA-Public Use
  Company Number: WAES 1008USA02437

PATIENT
  Age: 30 Year
  Sex: Female

DRUGS (2)
  1. ISENTRESS [Suspect]
     Indication: HIV INFECTION
     Dosage: 400 MG/BID/PO
     Route: 048
     Dates: start: 20091031, end: 20100818
  2. TRUVADA [Concomitant]

REACTIONS (2)
  - DRUG INEFFECTIVE [None]
  - VIRAL LOAD INCREASED [None]
